FAERS Safety Report 15896452 (Version 1)
Quarter: 2019Q1

REPORT INFORMATION
  Report Type: Spontaneous
  Country: FR (occurrence: FR)
  Receive Date: 20190131
  Receipt Date: 20190131
  Transmission Date: 20190417
  Serious: Yes (Hospitalization)
  Sender: FDA-Public Use
  Company Number: FR-PFIZER INC-2019034822

PATIENT
  Age: 41 Year
  Sex: Female

DRUGS (1)
  1. VENLAFAXINE HCL [Suspect]
     Active Substance: VENLAFAXINE HYDROCHLORIDE
     Dosage: 1 DF, UNK
     Route: 048
     Dates: start: 2017, end: 201811

REACTIONS (1)
  - Blood creatine phosphokinase increased [Recovering/Resolving]

NARRATIVE: CASE EVENT DATE: 201811
